FAERS Safety Report 18314470 (Version 1)
Quarter: 2020Q3

REPORT INFORMATION
  Report Type: Spontaneous
  Country: US (occurrence: US)
  Receive Date: 20200925
  Receipt Date: 20200925
  Transmission Date: 20201103
  Serious: No
  Sender: FDA-Public Use
  Company Number: US-PFIZER INC-2020366803

PATIENT
  Age: 60 Year
  Sex: Female
  Weight: 53.07 kg

DRUGS (2)
  1. IBRANCE [Suspect]
     Active Substance: PALBOCICLIB
     Indication: BREAST CANCER METASTATIC
     Dosage: UNK, (21 DAYS ON AND 1 WEEK OFF)
     Dates: start: 201902, end: 2020
  2. FASLODEX [Suspect]
     Active Substance: FULVESTRANT
     Indication: BREAST CANCER METASTATIC
     Dosage: UNK, EVERY 3 WEEKS (GET 2 SHOTS IN HIPS)
     Route: 014

REACTIONS (3)
  - Gastrointestinal disorder [Unknown]
  - Alopecia [Unknown]
  - Diarrhoea [Unknown]
